FAERS Safety Report 4467968-9 (Version None)
Quarter: 2004Q4

REPORT INFORMATION
  Report Type: 
  Country: None (occurrence: None)
  Receive Date: 20041001
  Receipt Date: 20040924
  Transmission Date: 20050328
  Serious: Yes (Other)
  Sender: FDA-Public Use
  Company Number: HQWYE839807SEP04

PATIENT
  Age: 19 Year
  Sex: Female

DRUGS (2)
  1. LOETTE (LEVONORGESTREL/ETHINYL ESTRADIOL, TABLET) [Suspect]
     Indication: CONTRACEPTION
     Dosage: 1 TABLET 1X PER 1 DAY  ORAL
     Route: 048
     Dates: start: 20040803, end: 20040915
  2. VALPROATE SODIUM [Concomitant]

REACTIONS (2)
  - CONDITION AGGRAVATED [None]
  - EPILEPSY [None]
